FAERS Safety Report 6046139-9 (Version None)
Quarter: 2009Q1

REPORT INFORMATION
  Report Type: 
  Country: None (occurrence: None)
  Receive Date: 20090122
  Receipt Date: 20090115
  Transmission Date: 20090719
  Serious: Yes (Hospitalization)
  Sender: FDA-Public Use
  Company Number: FR-JNJFOC-20090104385

PATIENT
  Age: 44 Year
  Sex: Female

DRUGS (4)
  1. DURAGESIC-100 [Suspect]
     Indication: SCIATICA
     Route: 062
  2. TIAPRIDAL [Suspect]
     Indication: SCIATICA
     Route: 030
  3. SERESTA [Concomitant]
     Route: 065
  4. ZOPICLONE [Concomitant]
     Route: 065

REACTIONS (2)
  - URTICARIA [None]
  - VOMITING [None]
